FAERS Safety Report 23769929 (Version 1)
Quarter: 2024Q2

REPORT INFORMATION
  Report Type: Spontaneous
  Country: US (occurrence: None)
  Receive Date: 20240421
  Receipt Date: 20240421
  Transmission Date: 20240716
  Serious: Yes (Hospitalization)
  Sender: FDA-Public Use
  Company Number: None

PATIENT
  Age: 74 Year
  Sex: Male
  Weight: 100 kg

DRUGS (1)
  1. PROPOFOL [Suspect]
     Active Substance: PROPOFOL
     Indication: Anaesthesia
     Dosage: 80MG ONCE IV?
     Route: 042
     Dates: start: 20230609, end: 20230609

REACTIONS (3)
  - Atrial fibrillation [None]
  - Tachycardia [None]
  - Drug intolerance [None]

NARRATIVE: CASE EVENT DATE: 20230609
